FAERS Safety Report 6892713-7 (Version None)
Quarter: 2010Q3

REPORT INFORMATION
  Report Type: 
  Country: None (occurrence: None)
  Receive Date: 20100731
  Receipt Date: 20080903
  Transmission Date: 20110219
  Serious: No
  Sender: FDA-Public Use
  Company Number: US-PFIZER INC-2008074050

PATIENT
  Sex: Male
  Weight: 63.5 kg

DRUGS (1)
  1. NEURONTIN [Suspect]
     Indication: NEUROPATHY PERIPHERAL
     Dates: start: 20030101

REACTIONS (2)
  - NEUROPATHY PERIPHERAL [None]
  - PAIN [None]
